FAERS Safety Report 6068252-2 (Version None)
Quarter: 2009Q1

REPORT INFORMATION
  Report Type: 
  Country: None (occurrence: None)
  Receive Date: 20090206
  Receipt Date: 20090126
  Transmission Date: 20090719
  Serious: Yes (Other)
  Sender: FDA-Public Use
  Company Number: PHEH2009US01175

PATIENT
  Sex: Male

DRUGS (1)
  1. TRILEPTAL [Suspect]

REACTIONS (5)
  - BRAIN OPERATION [None]
  - DYSKINESIA [None]
  - FEELING ABNORMAL [None]
  - MALAISE [None]
  - TREATMENT NONCOMPLIANCE [None]
